FAERS Safety Report 14723450 (Version 2)
Quarter: 2018Q2

REPORT INFORMATION
  Report Type: Spontaneous
  Country: US (occurrence: US)
  Receive Date: 20180405
  Receipt Date: 20180411
  Transmission Date: 20180711
  Serious: Yes (Hospitalization, Other)
  Sender: FDA-Public Use
  Company Number: US-009507513-1804USA000824

PATIENT
  Sex: Male

DRUGS (5)
  1. ISENTRESS [Suspect]
     Active Substance: RALTEGRAVIR POTASSIUM
     Indication: HIV INFECTION
     Dosage: 400 MG TWICE A DAY
     Route: 048
     Dates: start: 2010, end: 201707
  2. ISENTRESS [Suspect]
     Active Substance: RALTEGRAVIR POTASSIUM
     Dosage: 100 MG TWICE A DAY
     Dates: start: 201708
  3. SELZENTRY [Concomitant]
     Active Substance: MARAVIROC
  4. ZIAGEN [Concomitant]
     Active Substance: ABACAVIR SULFATE
  5. MESTINON [Suspect]
     Active Substance: PYRIDOSTIGMINE BROMIDE
     Indication: NEURODEGENERATIVE DISORDER

REACTIONS (4)
  - Night sweats [Recovered/Resolved]
  - Neurodegenerative disorder [Not Recovered/Not Resolved]
  - Oropharyngeal dysplasia [Not Recovered/Not Resolved]
  - Drug dose omission [Unknown]
